FAERS Safety Report 11443348 (Version 3)
Quarter: 2016Q1

REPORT INFORMATION
  Report Type: Spontaneous
  Country: US (occurrence: US)
  Receive Date: 20150901
  Receipt Date: 20160303
  Transmission Date: 20160525
  Serious: Yes (Hospitalization, Disabling, Other)
  Sender: FDA-Public Use
  Company Number: US-009507513-1509USA000425

PATIENT
  Sex: Female

DRUGS (7)
  1. FOSAMAX [Suspect]
     Active Substance: ALENDRONATE SODIUM
     Indication: OSTEOPENIA
     Dosage: 70 MG, UNKNOWN
     Route: 048
     Dates: start: 200101, end: 200702
  2. ALENDRONATE SODIUM. [Suspect]
     Active Substance: ALENDRONATE SODIUM
     Indication: OSTEOPOROSIS
     Dosage: 70 MG, UNKNOWN
     Route: 048
     Dates: start: 200810, end: 200912
  3. ALENDRONATE SODIUM. [Suspect]
     Active Substance: ALENDRONATE SODIUM
     Indication: OSTEOPOROSIS
     Dosage: 70 MG, UNKNOWN
     Route: 048
     Dates: start: 200912, end: 201304
  4. NARDIL [Concomitant]
     Active Substance: PHENELZINE SULFATE
     Indication: PANIC ATTACK
     Dosage: 15 MG, UNKNOWN
     Route: 048
     Dates: start: 1988
  5. FOSAMAX [Suspect]
     Active Substance: ALENDRONATE SODIUM
     Indication: OSTEOPOROSIS
     Dosage: 10 MG, UNKNOWN
     Route: 048
     Dates: start: 20000531, end: 200101
  6. HORMONES (UNSPECIFIED) [Concomitant]
     Active Substance: UNSPECIFIED INGREDIENT
     Indication: PRODUCT USED FOR UNKNOWN INDICATION
     Dosage: UNK, UNKNOWN
     Route: 065
     Dates: start: 1969
  7. ALENDRONATE SODIUM. [Suspect]
     Active Substance: ALENDRONATE SODIUM
     Indication: OSTEOPOROSIS
     Dosage: 70 MG, UNKNOWN
     Route: 048
     Dates: start: 200802, end: 200810

REACTIONS (31)
  - Tooth disorder [Unknown]
  - Fall [Unknown]
  - Vulvovaginal discomfort [Unknown]
  - Foot deformity [Unknown]
  - Urinary incontinence [Unknown]
  - Tooth disorder [Unknown]
  - Head injury [Unknown]
  - Atrophic vulvovaginitis [Unknown]
  - Wrist fracture [Recovered/Resolved]
  - Dysuria [Unknown]
  - Eczema [Unknown]
  - Seborrhoeic keratosis [Unknown]
  - Cough [Unknown]
  - Memory impairment [Unknown]
  - Femur fracture [Not Recovered/Not Resolved]
  - Cataract [Unknown]
  - Fall [Unknown]
  - Kyphosis [Unknown]
  - Facial bones fracture [Unknown]
  - Tuberculin test positive [Unknown]
  - Urinary tract infection [Unknown]
  - Rhinitis [Unknown]
  - Insomnia [Unknown]
  - Foot fracture [Unknown]
  - Chronic obstructive pulmonary disease [Unknown]
  - Dyspnoea [Unknown]
  - Low turnover osteopathy [Not Recovered/Not Resolved]
  - Femur fracture [Not Recovered/Not Resolved]
  - Spinal deformity [Unknown]
  - Varicose vein [Unknown]
  - Pollakiuria [Unknown]

NARRATIVE: CASE EVENT DATE: 2003
